FAERS Safety Report 9555849 (Version 1)
Quarter: 2013Q3

REPORT INFORMATION
  Report Type: Spontaneous
  Country: US (occurrence: None)
  Receive Date: 20130906
  Receipt Date: 20130906
  Transmission Date: 20140515
  Serious: Yes (Other)
  Sender: FDA-Public Use
  Company Number: 163-POMAL-13053936

PATIENT
  Sex: Male
  Weight: 96 kg

DRUGS (3)
  1. POMALYST [Suspect]
     Route: 048
     Dates: start: 201304
  2. DEXAMETHASONE (DEXAMETHASONE) [Concomitant]
  3. MOTRIN (IBUPROFEN) [Concomitant]

REACTIONS (1)
  - Blood uric acid increased [None]
